FAERS Safety Report 9013609 (Version 1)
Quarter: 2013Q1

REPORT INFORMATION
  Report Type: Spontaneous
  Country: US (occurrence: None)
  Receive Date: 20130109
  Receipt Date: 20130109
  Transmission Date: 20140127
  Serious: Yes (Hospitalization)
  Sender: FDA-Public Use
  Company Number: None

PATIENT
  Sex: Male
  Weight: 93.4 kg

DRUGS (3)
  1. BEVACIZUMAB [Suspect]
  2. CARBOPLATIN [Suspect]
  3. PACLITAXEL (TAXOL) [Suspect]

REACTIONS (5)
  - Cough [None]
  - Chronic obstructive pulmonary disease [None]
  - Leukopenia [None]
  - Bronchopneumonia [None]
  - Neutropenia [None]
